FAERS Safety Report 5590727-0 (Version None)
Quarter: 2008Q1

REPORT INFORMATION
  Report Type: 
  Country: None (occurrence: None)
  Receive Date: 20080114
  Receipt Date: 20080102
  Transmission Date: 20080703
  Serious: Yes (Hospitalization, Other)
  Sender: FDA-Public Use
  Company Number: DE-PFIZER INC-2007094542

PATIENT
  Sex: Male
  Weight: 94 kg

DRUGS (5)
  1. LYRICA [Suspect]
     Indication: TRIGEMINAL NEURALGIA
     Route: 048
  2. LYRICA [Interacting]
     Indication: HERPES ZOSTER
  3. MARCUMAR [Interacting]
     Indication: ANTICOAGULANT THERAPY
     Route: 048
  4. TILIDINE [Interacting]
     Dosage: DAILY DOSE:40DROP-FREQ:AS NEEDED
     Route: 048
  5. APROVEL [Concomitant]
     Route: 048

REACTIONS (3)
  - DRUG INTERACTION [None]
  - HAEMORRHAGE [None]
  - INTERNATIONAL NORMALISED RATIO INCREASED [None]
